FAERS Safety Report 9996258 (Version 1)
Quarter: 2014Q1

REPORT INFORMATION
  Report Type: Spontaneous
  Country: US (occurrence: None)
  Receive Date: 20140310
  Receipt Date: 20140310
  Transmission Date: 20141002
  Serious: Yes (Disabling, Other)
  Sender: FDA-Public Use
  Company Number: None

PATIENT
  Age: 50 Day
  Sex: Female
  Weight: 66.68 kg

DRUGS (1)
  1. METHADONE [Suspect]
     Indication: PAIN
     Route: 048

REACTIONS (4)
  - Chest pain [None]
  - Local swelling [None]
  - Local swelling [None]
  - Dyspnoea [None]
